FAERS Safety Report 20684512 (Version 1)
Quarter: 2022Q2

REPORT INFORMATION
  Report Type: Spontaneous
  Country: US (occurrence: None)
  Receive Date: 20220405
  Receipt Date: 20220405
  Transmission Date: 20220720
  Serious: No
  Sender: FDA-Public Use
  Company Number: None

PATIENT
  Sex: Female

DRUGS (1)
  1. HUMIRA [Suspect]
     Active Substance: ADALIMUMAB
     Indication: Rheumatoid arthritis
     Dosage: OTHER STRENGTH : 40MG/0.4ML;?FREQUENCY : EVERY OTHER WEEK;?
     Route: 058

REACTIONS (5)
  - Back pain [None]
  - Pain in extremity [None]
  - Pain [None]
  - Drug ineffective [None]
  - Spinal operation [None]
